FAERS Safety Report 5727077-5 (Version None)
Quarter: 2008Q2

REPORT INFORMATION
  Report Type: 
  Country: None (occurrence: None)
  Receive Date: 20080430
  Receipt Date: 20080415
  Transmission Date: 20081010
  Serious: Yes (Death, Hospitalization)
  Sender: FDA-Public Use
  Company Number: 2008000805

PATIENT
  Age: 83 Year
  Sex: Male

DRUGS (4)
  1. TARCEVA [Suspect]
     Indication: LUNG NEOPLASM MALIGNANT
     Dosage: (150 MG, QD), ORAL
     Route: 048
     Dates: start: 20080306, end: 20080325
  2. BUDESONIDE [Concomitant]
  3. HYDROCODONE (HYDROCODONE) [Concomitant]
  4. TIOTROPIUM BROMIDE [Concomitant]

REACTIONS (3)
  - ANOREXIA [None]
  - PNEUMONIA [None]
  - RASH [None]
